FAERS Safety Report 9000642 (Version 1)
Quarter: 2012Q4

REPORT INFORMATION
  Report Type: Spontaneous
  Country: DE (occurrence: None)
  Receive Date: 20121226
  Receipt Date: 20121226
  Transmission Date: 20130627
  Serious: Yes (Hospitalization)
  Sender: FDA-Public Use
  Company Number: DSA_61483_2012

PATIENT
  Age: 40 Year
  Sex: Female

DRUGS (3)
  1. ELONTRIL [Suspect]
     Indication: DEPRESSION
     Dosage: (DF)
     Route: 048
  2. ELONTRIL [Suspect]
     Indication: DEPRESSION
     Dosage: 18 times (2700 MG)
     Dates: start: 20120730, end: 20120730
  3. ELONTRIL [Suspect]
     Indication: DEPRESSION
     Dosage: one time dose, not as prescribed)
     Route: 048

REACTIONS (6)
  - Overdose [None]
  - Convulsion [None]
  - Dyskinesia [None]
  - Rhabdomyolysis [None]
  - Tachycardia [None]
  - Electrocardiogram QT prolonged [None]
